FAERS Safety Report 14993153 (Version 7)
Quarter: 2019Q2

REPORT INFORMATION
  Report Type: Spontaneous
  Country: FR (occurrence: FR)
  Receive Date: 20180610
  Receipt Date: 20190409
  Transmission Date: 20190711
  Serious: Yes (Other)
  Sender: FDA-Public Use
  Company Number: FR-MYLANLABS-2018M1032441

PATIENT
  Age: 60 Year
  Sex: Male

DRUGS (12)
  1. SALBUTAMOL                         /00139502/ [Suspect]
     Active Substance: ALBUTEROL SULFATE
     Indication: PRODUCT USED FOR UNKNOWN INDICATION
     Dosage: 6 DF, QD,(6 PUFFS PER DAY)
     Route: 065
  2. SALMETEROL [Suspect]
     Active Substance: SALMETEROL
     Indication: PRODUCT USED FOR UNKNOWN INDICATION
     Dosage: UNK,(6 PUFFS/DAY; 100 ?G/DAY)
     Route: 065
  3. FLUTICASONE. [Suspect]
     Active Substance: FLUTICASONE
     Dosage: 1000 MICROGRAM, QD
     Route: 065
  4. FLUTICASONE. [Suspect]
     Active Substance: FLUTICASONE
     Dosage: 0.055 MILLIGRAM, QD
     Route: 045
  5. AZITHROMYCIN ANHYDROUS. [Suspect]
     Active Substance: AZITHROMYCIN ANHYDROUS
     Indication: PROPHYLAXIS
     Dosage: 250 MG, QOD
     Route: 065
  6. MONTELUKAST [Suspect]
     Active Substance: MONTELUKAST SODIUM
     Indication: PRODUCT USED FOR UNKNOWN INDICATION
     Dosage: 10 MILLIGRAM, QD
     Route: 065
  7. LEVOCETIRIZINE [Suspect]
     Active Substance: LEVOCETIRIZINE
     Indication: PRODUCT USED FOR UNKNOWN INDICATION
     Dosage: 5 MG, QD
     Route: 065
  8. FLUTICASONE. [Suspect]
     Active Substance: FLUTICASONE
     Indication: PRODUCT USED FOR UNKNOWN INDICATION
     Dosage: 1000 MICROGRAM, QD
     Route: 045
  9. AZITHROMYCIN ANHYDROUS. [Suspect]
     Active Substance: AZITHROMYCIN ANHYDROUS
     Dosage: 250 MILLIGRAM, BID (ALTERNATE DAY (EVERY OTHER DAY FOR THREE MONTHS))
     Route: 065
  10. FLUTICASONE. [Suspect]
     Active Substance: FLUTICASONE
     Dosage: 55 GRAM, QD
     Route: 045
  11. FLUTICASONE. [Suspect]
     Active Substance: FLUTICASONE
     Dosage: 1 MILLIGRAM, QD
  12. SALMETEROL [Suspect]
     Active Substance: SALMETEROL
     Dosage: 0.1 MILLIGRAM, QD

REACTIONS (5)
  - Hypogammaglobulinaemia [Unknown]
  - Lung infection [Unknown]
  - Drug ineffective [Unknown]
  - Sinusitis [Unknown]
  - Asthma [Recovering/Resolving]
